FAERS Safety Report 15415743 (Version 2)
Quarter: 2018Q4

REPORT INFORMATION
  Report Type: Report from Study
  Country: US (occurrence: US)
  Receive Date: 20180922
  Receipt Date: 20181024
  Transmission Date: 20190204
  Serious: No
  Sender: FDA-Public Use
  Company Number: PHEH2018US038961

PATIENT
  Age: 36 Year
  Sex: Female

DRUGS (1)
  1. GILENYA [Suspect]
     Active Substance: FINGOLIMOD HYDROCHLORIDE
     Indication: PRODUCT USED FOR UNKNOWN INDICATION
     Dosage: UNK
     Route: 065
     Dates: start: 20180412

REACTIONS (4)
  - Abdominal discomfort [Unknown]
  - Vision blurred [Unknown]
  - Fatigue [Unknown]
  - Gastroenteritis viral [Unknown]

NARRATIVE: CASE EVENT DATE: 20180915
